FAERS Safety Report 5982682-6 (Version None)
Quarter: 2008Q4

REPORT INFORMATION
  Report Type: 
  Country: None (occurrence: None)
  Receive Date: 20081205
  Receipt Date: 20081205
  Transmission Date: 20090506
  Serious: Yes (Other)
  Sender: FDA-Public Use
  Company Number: None

PATIENT
  Age: 61 Year
  Sex: Female
  Weight: 48.9885 kg

DRUGS (1)
  1. ROPINIROLE [Suspect]
     Indication: RESTLESS LEGS SYNDROME
     Dosage: ONE TABLET AT BEDTIME PO
     Route: 048
     Dates: start: 20081022, end: 20081130

REACTIONS (16)
  - ALOPECIA [None]
  - AMNESIA [None]
  - ANXIETY [None]
  - DRY MOUTH [None]
  - DYSPEPSIA [None]
  - FATIGUE [None]
  - FLATULENCE [None]
  - HEADACHE [None]
  - HEART RATE IRREGULAR [None]
  - HYPERHIDROSIS [None]
  - HYPOPHAGIA [None]
  - INSOMNIA [None]
  - NAUSEA [None]
  - PYREXIA [None]
  - VISUAL IMPAIRMENT [None]
  - WEIGHT DECREASED [None]
